FAERS Safety Report 5423191-2 (Version None)
Quarter: 2007Q3

REPORT INFORMATION
  Report Type: 
  Country: None (occurrence: None)
  Receive Date: 20070730
  Receipt Date: 20061222
  Transmission Date: 20080115
  Serious: Yes (Disabling)
  Sender: FDA-Public Use
  Company Number: 200617010BWH

PATIENT
  Age: 51 Year
  Sex: Male

DRUGS (3)
  1. AVELOX [Suspect]
     Indication: EAR INFECTION
     Dosage: 400 MG, QD, ORAL
     Route: 048
  2. AVELOX [Suspect]
     Indication: PHARYNGITIS
     Dosage: 400 MG, QD, ORAL
     Route: 048
  3. AVELOX [Suspect]
     Indication: SINUSITIS
     Dosage: 400 MG, QD, ORAL
     Route: 048

REACTIONS (2)
  - JOINT SPRAIN [None]
  - TENDON INJURY [None]
